FAERS Safety Report 19245762 (Version 4)
Quarter: 2021Q3

REPORT INFORMATION
  Report Type: Report from Study
  Country: None (occurrence: BE)
  Receive Date: 20210511
  Receipt Date: 20210809
  Transmission Date: 20211014
  Serious: Yes (Other)
  Sender: FDA-Public Use
  Company Number: BE-ABBVIE-20K-013-3451606-00

PATIENT
  Age: 85 Year
  Sex: Female
  Weight: 44 kg

DRUGS (19)
  1. DUODOPA [Suspect]
     Active Substance: CARBIDOPA\LEVODOPA
     Dosage: MD=3ML, CD=2.2ML/HR DURING 16HRS, ED=1ML
     Route: 050
     Dates: start: 20181128, end: 20200611
  2. DUODOPA [Suspect]
     Active Substance: CARBIDOPA\LEVODOPA
     Indication: PARKINSON^S DISEASE
     Dosage: UNKNOWN DOSAGES
     Route: 050
     Dates: start: 20150831, end: 20181128
  3. DUODOPA [Suspect]
     Active Substance: CARBIDOPA\LEVODOPA
     Dosage: MD= 4.5 ML, CD= 2.3 ML/HR DURING 16HRS, ED= 2 ML
     Route: 050
     Dates: start: 20201015, end: 20210113
  4. DUODOPA [Suspect]
     Active Substance: CARBIDOPA\LEVODOPA
     Dosage: MD= 4.5 ML, CD= 2.5 ML/HR DURING 16HRS, ED= 2.0 ML
     Route: 050
     Dates: start: 20210504, end: 20210712
  5. PROLOPA [Concomitant]
     Active Substance: BENSERAZIDE\LEVODOPA
     Indication: PARKINSON^S DISEASE
     Dosage: AT 8 AM, 10 AM, 2 PM AND 6 PM
     Route: 048
  6. PROLOPA HBS [Concomitant]
     Active Substance: BENSERAZIDE\LEVODOPA
     Indication: PARKINSON^S DISEASE
     Route: 048
  7. NESTROLAN [Concomitant]
     Indication: PRODUCT USED FOR UNKNOWN INDICATION
     Route: 048
  8. AMANTAN [Concomitant]
     Indication: PARKINSON^S DISEASE
     Route: 048
  9. DUODOPA [Suspect]
     Active Substance: CARBIDOPA\LEVODOPA
     Dosage: MD=4.5ML, CD=2.2ML/HR DURING 16HRS, ED=1ML
     Route: 050
     Dates: start: 20200901, end: 20200910
  10. DUODOPA [Suspect]
     Active Substance: CARBIDOPA\LEVODOPA
     Dosage: MD= 4.5 ML, CD= 2.5 ML/HR DURING 16HRS, ED= 2.0 ML
     Route: 050
     Dates: start: 20210409, end: 20210504
  11. ZOLPIDEM [Concomitant]
     Active Substance: ZOLPIDEM TARTRATE
     Indication: PRODUCT USED FOR UNKNOWN INDICATION
     Route: 048
  12. MIRAPEXIN [Concomitant]
     Active Substance: PRAMIPEXOLE
     Indication: PARKINSON^S DISEASE
     Dosage: MIRAPEXIN 3,15
     Route: 048
  13. DUODOPA [Suspect]
     Active Substance: CARBIDOPA\LEVODOPA
     Dosage: MD=3ML, CD=2.1ML/HR DURING 16HRS, ED=1ML
     Route: 050
     Dates: start: 20200611, end: 20200901
  14. DUODOPA [Suspect]
     Active Substance: CARBIDOPA\LEVODOPA
     Dosage: MD=4.5ML, CD=2.2ML/HR DURING 16HRS, ED=1.5ML
     Route: 050
     Dates: start: 20200910, end: 20200921
  15. DUODOPA [Suspect]
     Active Substance: CARBIDOPA\LEVODOPA
     Dosage: MD= 4.5 ML, CD= 2.4 ML/HR DURING 16HRS, ED= 2.0 ML
     Route: 050
     Dates: start: 20210113, end: 20210409
  16. LEPONEX [Concomitant]
     Active Substance: CLOZAPINE
     Indication: PRODUCT USED FOR UNKNOWN INDICATION
     Route: 048
  17. PROLOPA [Concomitant]
     Active Substance: BENSERAZIDE\LEVODOPA
  18. DUODOPA [Suspect]
     Active Substance: CARBIDOPA\LEVODOPA
     Dosage: MD= 4.5 ML, CD= 2.5 ML/HR DURING 16HRS, ED= 1.5 ML
     Route: 050
     Dates: start: 20200921, end: 20201015
  19. DUODOPA [Suspect]
     Active Substance: CARBIDOPA\LEVODOPA
     Dosage: MD 4.5 ML; CD 3.3 ML/HR REMAINS AT 16 HOURS; ED 2.0 ML
     Route: 050
     Dates: start: 20210712

REACTIONS (16)
  - Mobility decreased [Not Recovered/Not Resolved]
  - On and off phenomenon [Unknown]
  - Discomfort [Unknown]
  - Freezing phenomenon [Not Recovered/Not Resolved]
  - Mobility decreased [Not Recovered/Not Resolved]
  - Muscle rigidity [Unknown]
  - Clavicle fracture [Unknown]
  - Fall [Unknown]
  - Hallucination [Unknown]
  - Depressed level of consciousness [Unknown]
  - Dyskinesia [Not Recovered/Not Resolved]
  - Freezing phenomenon [Recovered/Resolved]
  - Therapeutic product effect decreased [Recovered/Resolved]
  - Device alarm issue [Unknown]
  - Mobility decreased [Recovered/Resolved]
  - Malaise [Unknown]

NARRATIVE: CASE EVENT DATE: 202009
